APPROVED DRUG PRODUCT: VONTROL
Active Ingredient: DIPHENIDOL HYDROCHLORIDE
Strength: EQ 25MG BASE
Dosage Form/Route: TABLET;ORAL
Application: N016033 | Product #001
Applicant: GLAXOSMITHKLINE
Approved: Approved Prior to Jan 1, 1982 | RLD: No | RS: No | Type: DISCN